FAERS Safety Report 8607785-9 (Version None)
Quarter: 2012Q3

REPORT INFORMATION
  Report Type: 
  Country: None (occurrence: None)
  Receive Date: 20120821
  Receipt Date: 20120816
  Transmission Date: 20120928
  Serious: Yes (Life-Threatening, Other)
  Sender: FDA-Public Use
  Company Number: PHHY2012BR071580

PATIENT
  Age: 55 Year
  Sex: Female

DRUGS (3)
  1. DIOVAN HCT [Suspect]
     Dosage: 1 TABLET IN MORNING
     Dates: start: 20100101
  2. DIOVAN HCT [Suspect]
     Indication: BLOOD PRESSURE
     Dosage: 1 TABLET IN MORNING
     Dates: start: 20100101
  3. DIOVAN HCT [Suspect]
     Dosage: 1 TABLET IN THE MORNING, 1 TABLET IN THE AFTERNOON AND SOMETIMES 1 IN THE DAWN

REACTIONS (11)
  - OEDEMA PERIPHERAL [None]
  - HEADACHE [None]
  - APHAGIA [None]
  - FEELING ABNORMAL [None]
  - HYPOKINESIA [None]
  - VOMITING [None]
  - DYSPNOEA [None]
  - DIZZINESS [None]
  - ASTHMA [None]
  - BLOOD PRESSURE INADEQUATELY CONTROLLED [None]
  - NAUSEA [None]
